FAERS Safety Report 10110643 (Version 1)
Quarter: 2014Q2

REPORT INFORMATION
  Report Type: Spontaneous
  Country: US (occurrence: None)
  Receive Date: 20140424
  Receipt Date: 20140424
  Transmission Date: 20141212
  Serious: Yes (Disabling)
  Sender: FDA-Public Use
  Company Number: None

PATIENT
  Age: 46 Year
  Sex: Male
  Weight: 77.11 kg

DRUGS (2)
  1. OPANA ER [Suspect]
     Indication: PAIN
     Dosage: 1 PILL TWICE DAILY TAKEN BY MOUTH
     Route: 048
     Dates: start: 20140326, end: 20140329
  2. OPANA ER [Suspect]
     Indication: NEUROPATHY PERIPHERAL
     Dosage: 1 PILL TWICE DAILY TAKEN BY MOUTH
     Route: 048
     Dates: start: 20140326, end: 20140329

REACTIONS (2)
  - Flatulence [None]
  - Diarrhoea [None]
